FAERS Safety Report 4523012-6 (Version None)
Quarter: 2004Q4

REPORT INFORMATION
  Report Type: 
  Country: None (occurrence: None)
  Receive Date: 20041208
  Receipt Date: 20041125
  Transmission Date: 20050328
  Serious: Yes (Hospitalization)
  Sender: FDA-Public Use
  Company Number: 2004102993

PATIENT
  Age: 84 Year
  Sex: Male
  Weight: 34.4734 kg

DRUGS (3)
  1. AMLODIPINE [Suspect]
     Indication: HYPERTENSION
     Dosage: 5 MG, 1 IN 1 D, ORAL
     Route: 048
     Dates: start: 20020621, end: 20041103
  2. CAPTOPRIL [Concomitant]
  3. TRAVOPROST [Concomitant]

REACTIONS (4)
  - DEHYDRATION [None]
  - DEPRESSION [None]
  - MALAISE [None]
  - PURPURA [None]
